FAERS Safety Report 19233834 (Version 1)
Quarter: 2021Q2

REPORT INFORMATION
  Report Type: Spontaneous
  Country: TR (occurrence: TR)
  Receive Date: 20210507
  Receipt Date: 20210507
  Transmission Date: 20210717
  Serious: Yes (Other)
  Sender: FDA-Public Use
  Company Number: TR-TAKEDA-2021TUS028916

PATIENT
  Age: 41 Year
  Sex: Female

DRUGS (4)
  1. VELCADE [Suspect]
     Active Substance: BORTEZOMIB
     Dosage: 1 MILLIGRAM/SQ. METER
     Route: 058
     Dates: start: 20160812
  2. CYCLOPHOSPHAMIDE. [Suspect]
     Active Substance: CYCLOPHOSPHAMIDE
     Indication: NEOPLASM
     Dosage: 300 MILLIGRAM/SQ. METER
     Route: 065
     Dates: start: 20160812
  3. DEXAMETHASONE. [Suspect]
     Active Substance: DEXAMETHASONE
     Indication: NEOPLASM
     Dosage: 40 MILLIGRAM
     Route: 065
     Dates: start: 20160812
  4. VELCADE [Suspect]
     Active Substance: BORTEZOMIB
     Indication: NEOPLASM
     Dosage: 1.3 MILLIGRAM/SQ. METER
     Route: 058
     Dates: start: 20160812

REACTIONS (2)
  - Pain [Unknown]
  - Recurrent cancer [Unknown]

NARRATIVE: CASE EVENT DATE: 202004
